FAERS Safety Report 12135921 (Version 1)
Quarter: 2016Q1

REPORT INFORMATION
  Report Type: Report from Study
  Country: GB (occurrence: GB)
  Receive Date: 20160302
  Receipt Date: 20160302
  Transmission Date: 20160526
  Serious: Yes (Hospitalization)
  Sender: FDA-Public Use
  Company Number: GB-ROCHE-1714142

PATIENT
  Age: 57 Year
  Sex: Female
  Weight: 73 kg

DRUGS (6)
  1. ERIBULIN [Concomitant]
     Active Substance: ERIBULIN
     Indication: HER-2 POSITIVE BREAST CANCER
     Dosage: 4 INJECTIONS RECEIVED
     Route: 042
     Dates: start: 201512
  2. HERCEPTIN [Suspect]
     Active Substance: TRASTUZUMAB
     Dosage: 9 INJECTIONS
     Route: 042
     Dates: start: 201412, end: 201508
  3. PERJETA [Suspect]
     Active Substance: PERTUZUMAB
     Indication: HER-2 POSITIVE BREAST CANCER
     Dosage: 9 INJECTIONS
     Route: 042
     Dates: start: 201412, end: 201508
  4. KADCYLA [Concomitant]
     Active Substance: ADO-TRASTUZUMAB EMTANSINE
     Indication: HER-2 POSITIVE BREAST CANCER
     Dosage: 3 INJECTIONS
     Route: 042
     Dates: start: 201509, end: 201512
  5. DOCETAXEL. [Suspect]
     Active Substance: DOCETAXEL
     Indication: HER-2 POSITIVE BREAST CANCER
     Dosage: 6 INJECTIONS
     Route: 042
     Dates: start: 201412, end: 201505
  6. HERCEPTIN [Suspect]
     Active Substance: TRASTUZUMAB
     Indication: HER-2 POSITIVE BREAST CANCER
     Route: 042
     Dates: end: 201308

REACTIONS (1)
  - Ascites [Unknown]
